FAERS Safety Report 4846804-2 (Version None)
Quarter: 2005Q4

REPORT INFORMATION
  Report Type: 
  Country: None (occurrence: None)
  Receive Date: 20051207
  Receipt Date: 20051125
  Transmission Date: 20060501
  Serious: Yes (Other)
  Sender: FDA-Public Use
  Company Number: PHBS2005JP17405

PATIENT
  Age: 70 Year
  Sex: Male

DRUGS (3)
  1. MIKELAN (NVO) [Suspect]
     Indication: GLAUCOMA
     Dosage: 1 DF/DAY
     Dates: start: 19960501, end: 20051121
  2. LATANOPROST [Suspect]
     Dates: start: 20050501, end: 20051121
  3. DORZOLAMIDE HYDROCHLORIDE [Concomitant]
     Dosage: 3 DF/DAY
     Dates: start: 20010101

REACTIONS (2)
  - DYSPNOEA [None]
  - RESPIRATORY FAILURE [None]
